FAERS Safety Report 4714864-5 (Version None)
Quarter: 2005Q3

REPORT INFORMATION
  Report Type: 
  Country: None (occurrence: None)
  Receive Date: 20050712
  Receipt Date: 20050629
  Transmission Date: 20060218
  Serious: Yes (Life-Threatening, Hospitalization)
  Sender: FDA-Public Use
  Company Number: 2004241116DE

PATIENT
  Age: 57 Year
  Sex: Male
  Weight: 84 kg

DRUGS (1)
  1. SOMAVERT [Suspect]
     Indication: ACROMEGALY
     Dosage: 20 MG (20 MG, DAILY), SUBCUTANEOUS
     Route: 058
     Dates: start: 20030828

REACTIONS (1)
  - LUNG SQUAMOUS CELL CARCINOMA STAGE UNSPECIFIED [None]
